FAERS Safety Report 8829726 (Version 1)
Quarter: 2012Q4

REPORT INFORMATION
  Report Type: 
  Country: US (occurrence: US)
  Receive Date: 20121008
  Receipt Date: 20121008
  Transmission Date: 20130627
  Serious: Yes (Hospitalization)
  Sender: FDA-Public Use
  Company Number: US-ROCHE-1137622

PATIENT
  Age: 61 Year
  Sex: Female

DRUGS (9)
  1. CAPECITABINE [Suspect]
     Indication: PRODUCT USED FOR UNKNOWN INDICATION
     Route: 065
     Dates: start: 20110812, end: 20120909
  2. LAPATINIB [Suspect]
     Indication: PRODUCT USED FOR UNKNOWN INDICATION
     Route: 048
     Dates: start: 20110812, end: 20120417
  3. OMEPRAZOLE [Concomitant]
     Route: 065
  4. PIPERACILLIN SODIUM [Concomitant]
     Route: 065
     Dates: start: 201107
  5. LEVOFLOXACIN [Concomitant]
     Route: 065
     Dates: start: 201107
  6. CEPHAZOLIN SODIUM [Concomitant]
     Route: 065
     Dates: start: 201107
  7. PROTON PUMP INHIBITOR (UNK INGREDIENTS) [Concomitant]
  8. CIPROFLOXACIN HCL [Concomitant]
     Route: 065
     Dates: start: 201107
  9. COTRIMOXAZOLE [Concomitant]
     Route: 065

REACTIONS (32)
  - Sepsis [Unknown]
  - Kidney infection [Recovered/Resolved]
  - Clostridium difficile colitis [Unknown]
  - Dry mouth [Recovered/Resolved]
  - Pyelonephritis [Unknown]
  - Bacteraemia [Unknown]
  - Dysaesthesia [Unknown]
  - Stomatitis [Unknown]
  - Dysgeusia [Unknown]
  - Fatigue [Recovered/Resolved]
  - Dizziness [Recovered/Resolved]
  - Tenderness [Recovered/Resolved]
  - Pain [Recovered/Resolved]
  - Paraesthesia [Recovered/Resolved]
  - Ataxia [Recovered/Resolved]
  - Diarrhoea [Unknown]
  - Abnormal faeces [Unknown]
  - Pyrexia [Unknown]
  - Chills [Unknown]
  - Urinary tract infection [Unknown]
  - Mucosal inflammation [Unknown]
  - Staphylococcal infection [Unknown]
  - Cystitis [Unknown]
  - Bone pain [Unknown]
  - Urine output increased [Unknown]
  - Dehydration [Unknown]
  - Disorientation [Unknown]
  - Headache [Unknown]
  - Flushing [Unknown]
  - Sinusitis [Unknown]
  - Epistaxis [Unknown]
  - Drug intolerance [Unknown]
